FAERS Safety Report 5689642-3 (Version None)
Quarter: 2008Q1

REPORT INFORMATION
  Report Type: 
  Country: None (occurrence: None)
  Receive Date: 20080331
  Receipt Date: 20080305
  Transmission Date: 20080703
  Serious: No
  Sender: FDA-Public Use
  Company Number: US-BOEHRINGER INGELHEIM GMBH, GERMANY-2008-BP-03417BP

PATIENT
  Sex: Female

DRUGS (21)
  1. SPIRIVA [Suspect]
     Indication: CHRONIC OBSTRUCTIVE PULMONARY DISEASE
     Route: 055
     Dates: start: 20070201
  2. SINGULAIR [Concomitant]
     Indication: RHINORRHOEA
  3. ALAVERT [Concomitant]
     Indication: MULTIPLE ALLERGIES
  4. NASAL SPRAY [Concomitant]
     Indication: SINUS DISORDER
  5. ADVAIR HFA [Concomitant]
     Indication: CHRONIC OBSTRUCTIVE PULMONARY DISEASE
  6. OXYGEN [Concomitant]
     Indication: CHRONIC OBSTRUCTIVE PULMONARY DISEASE
  7. IPRATROPIUM BROMIDE [Concomitant]
     Indication: CHRONIC OBSTRUCTIVE PULMONARY DISEASE
  8. TRIAM/HCT [Concomitant]
  9. LOVASTATIN [Concomitant]
     Route: 048
  10. LEVOXYL [Concomitant]
  11. AZPRAZOLAM [Concomitant]
  12. TEMPRA [Concomitant]
  13. VYTORIN [Concomitant]
  14. CELEBREX [Concomitant]
  15. LUMIGAN [Concomitant]
  16. BRIMONIDINE TARTRATE [Concomitant]
  17. CENTRUM SILVER [Concomitant]
  18. CALCIUM WITH VITAMIN D [Concomitant]
  19. ASCORBIC ACID [Concomitant]
  20. ECCHINACIA [Concomitant]
  21. MAGNESIUM [Concomitant]

REACTIONS (2)
  - DYSPNOEA [None]
  - PARANASAL SINUS HYPERSECRETION [None]
